FAERS Safety Report 23579817 (Version 1)
Quarter: 2024Q1

REPORT INFORMATION
  Report Type: Spontaneous
  Country: US (occurrence: None)
  Receive Date: 20240228
  Receipt Date: 20240228
  Transmission Date: 20240409
  Serious: Yes (Hospitalization)
  Sender: FDA-Public Use
  Company Number: None

PATIENT
  Age: 54 Year
  Sex: Female
  Weight: 62.1 kg

DRUGS (9)
  1. .DELTA.9-TETRAHYDROCANNABINOL\CANNABIDIOL\HERBALS [Suspect]
     Active Substance: .DELTA.9-TETRAHYDROCANNABINOL\CANNABIDIOL\HERBALS
     Indication: Product used for unknown indication
     Dosage: OTHER QUANTITY : 12 OUNCE(S);?OTHER FREQUENCY : 1;?
     Route: 048
     Dates: start: 20240222, end: 20240222
  2. NP thyroid 90 mg daily [Concomitant]
  3. Nurtec PRN [Concomitant]
  4. Meclizine PRN [Concomitant]
  5. Vitamin D [Concomitant]
  6. NIACIN [Concomitant]
  7. Vitamin c [Concomitant]
  8. Elderberry [Concomitant]
  9. ADULT MULTIVITAMIN [Concomitant]

REACTIONS (3)
  - Depressed level of consciousness [None]
  - Blood pressure decreased [None]
  - Heart rate decreased [None]

NARRATIVE: CASE EVENT DATE: 20240222
